FAERS Safety Report 18241091 (Version 1)
Quarter: 2020Q3

REPORT INFORMATION
  Report Type: Spontaneous
  Country: US (occurrence: US)
  Receive Date: 20200904
  Receipt Date: 20200904
  Transmission Date: 20201103
  Serious: No
  Sender: FDA-Public Use
  Company Number: None

PATIENT
  Age: 23 Year
  Sex: Female

DRUGS (1)
  1. GAMMAGARD S/D [Suspect]
     Active Substance: HUMAN IMMUNOGLOBULIN G
     Indication: IMMUNODEFICIENCY COMMON VARIABLE
     Dosage: ?          OTHER FREQUENCY: 2 DAYS EVERY 4 WEEKS?
     Route: 042
     Dates: start: 20200817

REACTIONS (3)
  - Pyrexia [None]
  - Ocular icterus [None]
  - Therapy interrupted [None]

NARRATIVE: CASE EVENT DATE: 20200817
